FAERS Safety Report 5622610-6 (Version None)
Quarter: 2008Q1

REPORT INFORMATION
  Report Type: 
  Country: None (occurrence: None)
  Receive Date: 20080211
  Receipt Date: 20080211
  Transmission Date: 20080703
  Serious: Yes (Hospitalization)
  Sender: FDA-Public Use
  Company Number: None

PATIENT
  Age: 67 Year
  Sex: Male

DRUGS (2)
  1. BUPROPION HCL [Suspect]
     Dosage: 150MG BID PO
     Route: 048
     Dates: start: 20071011, end: 20071116
  2. CITALOPRAM HYDROBROMIDE [Suspect]
     Dosage: 40MG EVERY DAY PO
     Route: 048
     Dates: start: 20070912, end: 20071216

REACTIONS (1)
  - CONVULSION [None]
